FAERS Safety Report 5346937-0 (Version None)
Quarter: 2007Q2

REPORT INFORMATION
  Report Type: 
  Country: None (occurrence: None)
  Receive Date: 20070430
  Receipt Date: 20070221
  Transmission Date: 20071010
  Serious: No
  Sender: FDA-Public Use
  Company Number: 261089

PATIENT
  Age: 70 Year
  Sex: Female
  Weight: 84.4 kg

DRUGS (6)
  1. LEVEMIR [Suspect]
     Indication: INSULIN-REQUIRING TYPE II DIABETES MELLITUS
     Dosage: 14 IU, QD, SUBCUTANEOUS
     Route: 058
     Dates: start: 20061117
  2. GLUCOPHAGE /00082701/ (METFORMIN) [Concomitant]
  3. AMARYL [Concomitant]
  4. LISINOPRIL HCT (HYDROCHLOROTHIAZIDE, LISINOPRIL) [Concomitant]
  5. CARTIA /00489702/ (DILTIAZEM HYDROCHLORIDE) [Concomitant]
  6. ASPIRIN [Concomitant]

REACTIONS (2)
  - INJECTION SITE BRUISING [None]
  - INJECTION SITE HAEMORRHAGE [None]
